FAERS Safety Report 9327940 (Version 1)
Quarter: 2013Q2

REPORT INFORMATION
  Report Type: Spontaneous
  Country: US (occurrence: US)
  Receive Date: 20130604
  Receipt Date: 20130604
  Transmission Date: 20140414
  Serious: No
  Sender: FDA-Public Use
  Company Number: US-PFIZER INC-2013164773

PATIENT
  Sex: Female
  Weight: 81.63 kg

DRUGS (1)
  1. ESTRING [Suspect]
     Dosage: 2 MG, UNK
     Route: 067
     Dates: start: 20130522, end: 20130522

REACTIONS (2)
  - Product size issue [Unknown]
  - Vulvovaginal discomfort [Unknown]
